FAERS Safety Report 21955796 (Version 1)
Quarter: 2023Q1

REPORT INFORMATION
  Report Type: Other
  Country: None (occurrence: US)
  Receive Date: 20230206
  Receipt Date: 20230206
  Transmission Date: 20230418
  Serious: Yes (Hospitalization, Other)
  Sender: FDA-Public Use
  Company Number: US-Spectra Medical Devices, LLC-2137538

PATIENT
  Age: 59 Year
  Sex: Female

DRUGS (1)
  1. LIDOCAINE HYDROCHLORIDE ANHYDROUS [Suspect]
     Active Substance: LIDOCAINE HYDROCHLORIDE ANHYDROUS
     Indication: Spinal anaesthesia
     Route: 065

REACTIONS (8)
  - Local anaesthetic systemic toxicity [Recovered/Resolved]
  - Dysarthria [Recovered/Resolved]
  - Hallucination, tactile [Recovered/Resolved]
  - Nystagmus [Recovered/Resolved]
  - Akathisia [Recovered/Resolved]
  - Diplopia [Recovered/Resolved]
  - Confusional state [Recovered/Resolved]
  - Restlessness [Recovered/Resolved]
